FAERS Safety Report 5300024-6 (Version None)
Quarter: 2007Q2

REPORT INFORMATION
  Report Type: 
  Country: None (occurrence: None)
  Receive Date: 20070417
  Receipt Date: 20070405
  Transmission Date: 20071010
  Serious: Yes (Death, Hospitalization, Other)
  Sender: FDA-Public Use
  Company Number: US-PFIZER INC-2006125940

PATIENT
  Sex: Female

DRUGS (3)
  1. CELEBREX [Suspect]
     Indication: PAIN
     Route: 048
     Dates: start: 20010919, end: 20020207
  2. BEXTRA [Suspect]
     Indication: PAIN
     Dosage: TEXT:10MG AND/OR 20MG
     Route: 048
     Dates: start: 20030206, end: 20040122
  3. VIOXX [Suspect]
     Route: 048
     Dates: start: 20000101, end: 20030301

REACTIONS (3)
  - METABOLIC ACIDOSIS [None]
  - MYOCARDIAL INFARCTION [None]
  - SUDDEN CARDIAC DEATH [None]
